FAERS Safety Report 17348372 (Version 1)
Quarter: 2020Q1

REPORT INFORMATION
  Report Type: Report from Study
  Country: US (occurrence: US)
  Receive Date: 20200129
  Receipt Date: 20200129
  Transmission Date: 20200409
  Serious: No
  Sender: FDA-Public Use
  Company Number: US-EXELIXIS-CABO-19023960

PATIENT
  Age: 64 Year
  Sex: Male

DRUGS (1)
  1. CABOMETYX [Suspect]
     Active Substance: CABOZANTINIB S-MALATE
     Indication: RENAL CANCER
     Dosage: 60 MG, QD
     Route: 048
     Dates: start: 20190724, end: 20190904

REACTIONS (6)
  - Pruritus genital [Unknown]
  - Diarrhoea [Unknown]
  - Genital blister [Unknown]
  - Skin exfoliation [Unknown]
  - Skin irritation [Unknown]
  - Vomiting [Unknown]

NARRATIVE: CASE EVENT DATE: 201907
